FAERS Safety Report 7544154-7 (Version None)
Quarter: 2011Q2

REPORT INFORMATION
  Report Type: 
  Country: None (occurrence: None)
  Receive Date: 20110613
  Receipt Date: 20060324
  Transmission Date: 20111010
  Serious: Yes (Hospitalization)
  Sender: FDA-Public Use
  Company Number: PHHO2006CL04991

PATIENT
  Sex: Female

DRUGS (8)
  1. ELEVAL [Concomitant]
  2. TENSODOX [Concomitant]
  3. DOMPERIDONE [Concomitant]
  4. ASPIRIN [Concomitant]
  5. AMIODARONE HCL [Concomitant]
  6. LIPITOR [Concomitant]
  7. RAVOTRIL [Concomitant]
  8. VALSARTAN  AND HYDROCHLOROTHIAZIDE [Suspect]
     Dosage: 172.5 MG, QD
     Route: 048

REACTIONS (1)
  - MYOCARDIAL INFARCTION [None]
